FAERS Safety Report 23598288 (Version 1)
Quarter: 2024Q1

REPORT INFORMATION
  Report Type: Spontaneous
  Country: US (occurrence: US)
  Receive Date: 20240305
  Receipt Date: 20240305
  Transmission Date: 20240410
  Serious: Yes (Hospitalization, Other)
  Sender: FDA-Public Use
  Company Number: US-PFIZER INC-202400056920

PATIENT
  Age: 27 Year
  Sex: Female

DRUGS (1)
  1. OXBRYTA [Suspect]
     Active Substance: VOXELOTOR
     Dosage: 500 MG, 3 TABLETS BY MOUTH ONCE DAILY
     Route: 048
     Dates: start: 20201112

REACTIONS (5)
  - Sickle cell anaemia with crisis [Unknown]
  - Transient ischaemic attack [Unknown]
  - Diarrhoea [Recovered/Resolved]
  - Rash [Unknown]
  - Loss of personal independence in daily activities [Unknown]

NARRATIVE: CASE EVENT DATE: 20230215
